FAERS Safety Report 11399025 (Version 1)
Quarter: 2015Q3

REPORT INFORMATION
  Report Type: Report from Study
  Country: US (occurrence: US)
  Receive Date: 20150820
  Receipt Date: 20150820
  Transmission Date: 20151125
  Serious: Yes (Death)
  Sender: FDA-Public Use
  Company Number: US-ASTELLAS-2015US022226

PATIENT
  Sex: Male

DRUGS (5)
  1. NEXAVAR [Concomitant]
     Active Substance: SORAFENIB
     Indication: PRODUCT USED FOR UNKNOWN INDICATION
     Dosage: UNK UNK, UNKNOWN FREQ.
     Route: 065
  2. AVASTIN [Suspect]
     Active Substance: BEVACIZUMAB
     Indication: HEPATIC CANCER
     Route: 042
     Dates: start: 20080620
  3. ALDACTONE [Concomitant]
     Active Substance: SPIRONOLACTONE
     Indication: PRODUCT USED FOR UNKNOWN INDICATION
     Route: 048
  4. ALDACTONE [Concomitant]
     Active Substance: SPIRONOLACTONE
     Route: 048
  5. ERLOTINIB [Suspect]
     Active Substance: ERLOTINIB
     Indication: HEPATIC CANCER
     Route: 048
     Dates: start: 20080620

REACTIONS (10)
  - Off label use [Unknown]
  - Diarrhoea [Unknown]
  - Asthenia [Unknown]
  - Fatigue [Unknown]
  - Oedema peripheral [Unknown]
  - Dysgeusia [Unknown]
  - Rash [Unknown]
  - Anaemia [Unknown]
  - Death [Fatal]
  - Ascites [Unknown]
